FAERS Safety Report 5082884-X (Version None)
Quarter: 2006Q3

REPORT INFORMATION
  Report Type: 
  Country: None (occurrence: None)
  Receive Date: 20060817
  Receipt Date: 20060726
  Transmission Date: 20061208
  Serious: Yes (Life-Threatening, Hospitalization)
  Sender: FDA-Public Use
  Company Number: US-BOEHRINGER INGELHEIM PHARMACEUTICALS, INC.-2006-BP-08620BP

PATIENT
  Age: 46 Year
  Sex: Male

DRUGS (11)
  1. APTIVUS/RITONAVIR CAPSULES [Suspect]
     Indication: HIV INFECTION
     Dosage: DOSE: 1000 MG/400MG
     Route: 048
     Dates: start: 20060404, end: 20060725
  2. TRUVADA [Concomitant]
     Route: 048
  3. SULFADIAZINE [Concomitant]
  4. T-20 [Concomitant]
     Route: 058
  5. LEUCOVORIN CALCIUM [Concomitant]
     Route: 048
  6. AZITHROMYCIN [Concomitant]
  7. MEGACE [Concomitant]
     Route: 048
     Dates: start: 20060724, end: 20060725
  8. ACYCLOVIR [Concomitant]
  9. DIFLUCAN [Concomitant]
     Route: 048
  10. DARAPRIM [Concomitant]
  11. BACTRIM DS [Concomitant]
     Route: 048

REACTIONS (2)
  - KAPOSI'S SARCOMA [None]
  - PULMONARY EMBOLISM [None]
